FAERS Safety Report 9169358 (Version 1)
Quarter: 2013Q1

REPORT INFORMATION
  Report Type: Spontaneous
  Country: CA (occurrence: CA)
  Receive Date: 20130318
  Receipt Date: 20130318
  Transmission Date: 20140127
  Serious: Yes (Hospitalization, Other)
  Sender: FDA-Public Use
  Company Number: CA-GILEAD-2012-0062335

PATIENT
  Age: 37 Year
  Sex: Male

DRUGS (5)
  1. TRUVADA [Suspect]
     Indication: HIV INFECTION
  2. DARUNAVIR [Concomitant]
     Indication: HIV INFECTION
     Dosage: 800 MG, QD
     Route: 048
  3. RITONAVIR [Concomitant]
     Indication: HIV INFECTION
     Dosage: 100 MG, QD
     Route: 048
  4. RANITIDINE [Concomitant]
     Indication: HIV INFECTION
     Dosage: 150 MG, BID
     Route: 048
  5. DAPSONE [Concomitant]
     Indication: ANTIFUNGAL PROPHYLAXIS
     Dosage: 100 MG, QD
     Route: 048

REACTIONS (2)
  - Convulsion [Recovered/Resolved]
  - Lactic acidosis [Recovered/Resolved]
